FAERS Safety Report 9913513 (Version 1)
Quarter: 2014Q1

REPORT INFORMATION
  Report Type: Spontaneous
  Country: FR (occurrence: None)
  Receive Date: 20140218
  Receipt Date: 20140218
  Transmission Date: 20141002
  Serious: Yes (Other)
  Sender: FDA-Public Use
  Company Number: NGX_02245_2014

PATIENT
  Age: 42 Year
  Sex: Female

DRUGS (1)
  1. QUTENZA [Suspect]
     Indication: NEURALGIA
     Route: 061
     Dates: start: 201203, end: 20120616

REACTIONS (2)
  - Erythema [None]
  - Oropharyngeal discomfort [None]
